FAERS Safety Report 7564318-6 (Version None)
Quarter: 2011Q2

REPORT INFORMATION
  Report Type: 
  Country: None (occurrence: None)
  Receive Date: 20110622
  Receipt Date: 20110609
  Transmission Date: 20111010
  Serious: Yes (Other)
  Sender: FDA-Public Use
  Company Number: PHHY2011AU51042

PATIENT
  Sex: Male

DRUGS (1)
  1. ZOLEDRONIC ACID [Suspect]
     Dosage: 5 MG
     Route: 042
     Dates: start: 20110608

REACTIONS (5)
  - DEHYDRATION [None]
  - PAIN [None]
  - PYREXIA [None]
  - MALAISE [None]
  - FLUID INTAKE REDUCED [None]
